FAERS Safety Report 8052318-1 (Version None)
Quarter: 2012Q1

REPORT INFORMATION
  Report Type: 
  Country: None (occurrence: None)
  Receive Date: 20120118
  Receipt Date: 20120104
  Transmission Date: 20120608
  Serious: Yes (Other)
  Sender: FDA-Public Use
  Company Number: BR-AMGEN-BRACT2012001534

PATIENT
  Age: 50 Year
  Sex: Female
  Weight: 47 kg

DRUGS (6)
  1. ENBREL [Suspect]
     Indication: RHEUMATOID ARTHRITIS
     Dosage: 50 MG, QWK
     Route: 058
  2. METICORTEN [Concomitant]
     Dosage: UNK
  3. ENBREL [Suspect]
     Dosage: 50 MG, 1X/WEEK
     Route: 058
  4. LABIRIN [Concomitant]
     Dosage: UNK
  5. VITACAL                            /01535001/ [Concomitant]
     Dosage: UNK
  6. PIROXICAM [Concomitant]
     Dosage: UNK

REACTIONS (2)
  - DRUG INEFFECTIVE [None]
  - CHONDROPATHY [None]
